FAERS Safety Report 26117138 (Version 2)
Quarter: 2025Q4

REPORT INFORMATION
  Report Type: Spontaneous
  Country: US (occurrence: US)
  Receive Date: 20251203
  Receipt Date: 20251222
  Transmission Date: 20260117
  Serious: Yes (Hospitalization)
  Sender: TEVA
  Company Number: US-TEVA-VS-3396836

PATIENT
  Age: 80 Year
  Sex: Male

DRUGS (1)
  1. CHLORDIAZEPOXIDE [Suspect]
     Active Substance: CHLORDIAZEPOXIDE
     Indication: Alcohol withdrawal syndrome
     Dosage: TOTAL DOSE 350MG DURING HIS HD 2 TO 4
     Route: 065

REACTIONS (2)
  - Sedation [Unknown]
  - Therapeutic product effect prolonged [Unknown]
